FAERS Safety Report 6519568-4 (Version None)
Quarter: 2009Q4

REPORT INFORMATION
  Report Type: 
  Country: None (occurrence: None)
  Receive Date: 20091228
  Receipt Date: 20091218
  Transmission Date: 20100525
  Serious: Yes (Hospitalization)
  Sender: FDA-Public Use
  Company Number: FR-JNJFOC-20091206613

PATIENT
  Sex: Female

DRUGS (8)
  1. IXPRIM [Suspect]
     Indication: SCIATICA
     Route: 048
  2. FELDENE [Suspect]
     Indication: SCIATICA
     Route: 048
  3. CRESTOR [Suspect]
     Indication: DRUG USE FOR UNKNOWN INDICATION
     Route: 048
  4. FLUINDIONE [Interacting]
     Indication: MYOCARDIAL INFARCTION
     Route: 048
  5. CORVASAL [Concomitant]
  6. FELODIPINE [Concomitant]
  7. BROMAZEPAM [Concomitant]
  8. GELUPRANE [Concomitant]

REACTIONS (8)
  - BALANCE DISORDER [None]
  - DRUG INTERACTION [None]
  - HEPATIC ENZYME INCREASED [None]
  - INTERNATIONAL NORMALISED RATIO INCREASED [None]
  - NAUSEA [None]
  - OVERDOSE [None]
  - RENAL FAILURE ACUTE [None]
  - SOMNOLENCE [None]
